FAERS Safety Report 22005463 (Version 3)
Quarter: 2023Q1

REPORT INFORMATION
  Report Type: Report from Study
  Country: AU (occurrence: AU)
  Receive Date: 20230217
  Receipt Date: 20230323
  Transmission Date: 20230417
  Serious: Yes (Hospitalization)
  Sender: FDA-Public Use
  Company Number: AU-002147023-NVSC2023AU032606

PATIENT
  Age: 76 Year
  Sex: Female
  Weight: 68 kg

DRUGS (29)
  1. FLUDARABINE PHOSPHATE [Suspect]
     Active Substance: FLUDARABINE PHOSPHATE
     Indication: B-cell lymphoma
     Dosage: 1.5X10E9
     Route: 042
     Dates: start: 20230130
  2. FLUDARABINE [Suspect]
     Active Substance: FLUDARABINE PHOSPHATE
     Indication: B-cell lymphoma
     Dosage: 27.5 MG, QD
     Route: 042
     Dates: start: 20230125, end: 20230125
  3. FLUDARABINE [Suspect]
     Active Substance: FLUDARABINE PHOSPHATE
     Dosage: 27 MG, QD
     Route: 042
     Dates: start: 20230126, end: 20230126
  4. FLUDARABINE [Suspect]
     Active Substance: FLUDARABINE PHOSPHATE
     Dosage: 27 MG, QD
     Route: 042
     Dates: start: 20230127
  5. CYCLOPHOSPHAMIDE [Suspect]
     Active Substance: CYCLOPHOSPHAMIDE
     Indication: B-cell lymphoma
     Dosage: 880 MG, QD
     Route: 042
     Dates: start: 20230125, end: 20230125
  6. CYCLOPHOSPHAMIDE [Suspect]
     Active Substance: CYCLOPHOSPHAMIDE
     Dosage: 880 MG, QD
     Route: 042
     Dates: start: 20230126, end: 20230126
  7. CYCLOPHOSPHAMIDE [Suspect]
     Active Substance: CYCLOPHOSPHAMIDE
     Dosage: 880 MG, QD
     Route: 042
     Dates: start: 20230127
  8. RIVAROXABAN [Concomitant]
     Active Substance: RIVAROXABAN
     Indication: Deep vein thrombosis
     Dosage: UNK
     Route: 048
     Dates: end: 2022
  9. DOXYCYCLINE [Concomitant]
     Active Substance: DOXYCYCLINE
     Indication: Rosacea
     Dosage: UNK
     Route: 048
     Dates: end: 2018
  10. VALACYCLOVIR HYDROCHLORIDE [Concomitant]
     Active Substance: VALACYCLOVIR HYDROCHLORIDE
     Indication: Antiviral prophylaxis
     Dosage: UNK
     Route: 048
     Dates: end: 2022
  11. ESTRADIOL [Concomitant]
     Active Substance: ESTRADIOL
     Indication: Vulvovaginal dryness
     Dosage: UNK
     Route: 067
     Dates: end: 201806
  12. VITAMIN C [Concomitant]
     Active Substance: ASCORBIC ACID
     Indication: Supplementation therapy
     Dosage: UNK
     Route: 048
     Dates: end: 1970
  13. DULCOLAX NOS [Concomitant]
     Active Substance: BISACODYL OR DOCUSATE SODIUM
     Indication: Constipation
     Dosage: UNK
     Route: 048
     Dates: end: 202202
  14. FERINJECT [Concomitant]
     Active Substance: FERRIC CARBOXYMALTOSE
     Indication: Iron deficiency anaemia
     Dosage: UNK
     Route: 042
     Dates: start: 20230124, end: 20230124
  15. MAGNESIUM SULFATE [Concomitant]
     Active Substance: MAGNESIUM SULFATE
     Indication: Supplementation therapy
     Dosage: UNK, QD
     Route: 042
     Dates: start: 20230127, end: 20230127
  16. VITAMIN K [Concomitant]
     Active Substance: PHYTONADIONE
     Indication: Deep vein thrombosis
     Dosage: UNK, QD
     Route: 042
     Dates: start: 20230126, end: 20230126
  17. DOCUSATE SODIUM\SENNOSIDES A AND B [Concomitant]
     Active Substance: DOCUSATE SODIUM\SENNOSIDES A AND B
     Indication: Constipation
     Dosage: UNK
     Route: 048
     Dates: start: 20230126
  18. MOVICOL [Concomitant]
     Active Substance: POLYETHYLENE GLYCOL 3350\POTASSIUM CHLORIDE\SODIUM BICARBONATE\SODIUM CHLORIDE
     Indication: Constipation
     Dosage: UNK
     Route: 048
     Dates: start: 20230127
  19. SULFAMETHOXAZOLE\TRIMETHOPRIM [Concomitant]
     Active Substance: SULFAMETHOXAZOLE\TRIMETHOPRIM
     Indication: Antifungal prophylaxis
     Dosage: UNK
     Route: 048
     Dates: start: 20230126
  20. ALLOPURINOL [Concomitant]
     Active Substance: ALLOPURINOL
     Indication: Tumour lysis syndrome
     Dosage: UNK
     Route: 048
     Dates: start: 20230125
  21. ALLOPURINOL [Concomitant]
     Active Substance: ALLOPURINOL
     Indication: Prophylaxis
  22. CIPROFLOXACIN [Concomitant]
     Active Substance: CIPROFLOXACIN
     Indication: Antibiotic prophylaxis
     Dosage: UNK
     Route: 048
     Dates: start: 20230124
  23. FLUCONAZOLE [Concomitant]
     Active Substance: FLUCONAZOLE
     Indication: Antifungal prophylaxis
     Dosage: UNK
     Route: 048
     Dates: start: 20230125
  24. PANTOPRAZOLE [Concomitant]
     Active Substance: PANTOPRAZOLE
     Indication: Prophylaxis against gastrointestinal ulcer
     Dosage: UNK
     Route: 048
     Dates: start: 20230125
  25. PHYTONADIONE [Concomitant]
     Active Substance: PHYTONADIONE
     Indication: Supplementation therapy
     Dosage: UNK
     Route: 042
     Dates: start: 20230127
  26. METOCLOPRAMIDE [Concomitant]
     Active Substance: METOCLOPRAMIDE
     Indication: Nausea
     Dosage: UNK
     Route: 042
     Dates: start: 20230125
  27. OLANZAPINE [Concomitant]
     Active Substance: OLANZAPINE
     Indication: Nausea
     Dosage: UNK
     Route: 048
     Dates: start: 20230127
  28. ACETAMINOPHEN [Concomitant]
     Active Substance: ACETAMINOPHEN
     Indication: Headache
     Dosage: UNK
     Route: 048
     Dates: start: 20230127
  29. OXYCODONE [Concomitant]
     Active Substance: OXYCODONE
     Indication: Headache
     Dosage: UNK
     Route: 048
     Dates: start: 20230127

REACTIONS (1)
  - Staphylococcal sepsis [Recovered/Resolved]

NARRATIVE: CASE EVENT DATE: 20230129
